FAERS Safety Report 9342727 (Version 1)
Quarter: 2013Q2

REPORT INFORMATION
  Report Type: Spontaneous
  Country: US (occurrence: None)
  Receive Date: 20130530
  Receipt Date: 20130530
  Transmission Date: 20140414
  Serious: Yes (Hospitalization)
  Sender: FDA-Public Use
  Company Number: LIT-13-0018-W

PATIENT
  Age: 34 Year
  Sex: Male

DRUGS (2)
  1. ZOLPIDEM [Suspect]
     Indication: CIRCADIAN RHYTHM SLEEP DISORDER
     Route: 048
  2. LITHIUM [Concomitant]

REACTIONS (3)
  - Grand mal convulsion [None]
  - Alcohol use [None]
  - Drug withdrawal convulsions [None]
